FAERS Safety Report 20980805 (Version 1)
Quarter: 2022Q2

REPORT INFORMATION
  Report Type: Spontaneous
  Country: US (occurrence: US)
  Receive Date: 20220620
  Receipt Date: 20220620
  Transmission Date: 20220721
  Serious: No
  Sender: FDA-Public Use
  Company Number: US-AMGEN-USASP2022102056

PATIENT
  Sex: Female

DRUGS (1)
  1. PROLIA [Suspect]
     Active Substance: DENOSUMAB
     Indication: Osteoporosis postmenopausal
     Dosage: UNK
     Route: 065
     Dates: start: 20220506

REACTIONS (11)
  - Groin pain [Unknown]
  - Rash erythematous [Unknown]
  - Spider vein [Unknown]
  - Petechiae [Unknown]
  - Joint swelling [Unknown]
  - Glucose tolerance impaired [Unknown]
  - Muscle spasms [Unknown]
  - Myalgia [Unknown]
  - Osteoarthritis [Unknown]
  - Pollakiuria [Unknown]
  - Arthralgia [Unknown]
